FAERS Safety Report 6919442-5 (Version None)
Quarter: 2010Q3

REPORT INFORMATION
  Report Type: 
  Country: None (occurrence: None)
  Receive Date: 20100811
  Receipt Date: 20100803
  Transmission Date: 20110219
  Serious: Yes (Hospitalization)
  Sender: FDA-Public Use
  Company Number: B0666940A

PATIENT
  Sex: Male

DRUGS (1)
  1. ZYBAN [Suspect]
     Dosage: 150MG PER DAY
     Route: 048
     Dates: start: 20100612, end: 20100709

REACTIONS (5)
  - ARTHRALGIA [None]
  - ERYTHEMA [None]
  - PRURITUS [None]
  - RESPIRATORY DISORDER [None]
  - URTICARIA [None]
